FAERS Safety Report 17160529 (Version 2)
Quarter: 2019Q4

REPORT INFORMATION
  Report Type: Spontaneous
  Country: DE (occurrence: DE)
  Receive Date: 20191216
  Receipt Date: 20191229
  Transmission Date: 20200122
  Serious: Yes (Other)
  Sender: FDA-Public Use
  Company Number: DE-AMGEN-DEUSP2019206525

PATIENT
  Age: 43 Year
  Sex: Male

DRUGS (13)
  1. FLUDARABINE [Concomitant]
     Active Substance: FLUDARABINE PHOSPHATE
  2. DOXORUBICIN [Concomitant]
     Active Substance: DOXORUBICIN
  3. DEXAMETHASONE. [Concomitant]
     Active Substance: DEXAMETHASONE
  4. FILGRASTIM [Suspect]
     Active Substance: FILGRASTIM
     Indication: PRODUCT USED FOR UNKNOWN INDICATION
     Route: 065
  5. CYTARABINE. [Concomitant]
     Active Substance: CYTARABINE
  6. LEUCOVORINE [Concomitant]
     Active Substance: LEUCOVORIN
  7. BLINATUMOMAB [Suspect]
     Active Substance: BLINATUMOMAB
     Indication: B PRECURSOR TYPE ACUTE LEUKAEMIA
     Dosage: UNK
     Route: 065
  8. CYCLOPHOSPHAMIDE. [Concomitant]
     Active Substance: CYCLOPHOSPHAMIDE
  9. BUSULFAN. [Concomitant]
     Active Substance: BUSULFAN
  10. METHOTREXATE. [Concomitant]
     Active Substance: METHOTREXATE
  11. SODIUM BICARBONATE. [Concomitant]
     Active Substance: SODIUM BICARBONATE
  12. MESNA. [Concomitant]
     Active Substance: MESNA
  13. VINCRISTINE [Concomitant]
     Active Substance: VINCRISTINE

REACTIONS (12)
  - Pneumonia [Unknown]
  - Aplasia [Unknown]
  - Aspergillus test positive [Unknown]
  - Herpes simplex [Recovering/Resolving]
  - Cytopenia [Unknown]
  - Corynebacterium infection [Unknown]
  - Pyrexia [Unknown]
  - Candida test positive [Unknown]
  - Renal failure [Unknown]
  - Cytomegalovirus infection [Unknown]
  - Staphylococcal infection [Unknown]
  - Transplant failure [Unknown]
